FAERS Safety Report 22071128 (Version 1)
Quarter: 2023Q1

REPORT INFORMATION
  Report Type: Spontaneous
  Country: US (occurrence: US)
  Receive Date: 20230307
  Receipt Date: 20230307
  Transmission Date: 20230418
  Serious: Yes (Hospitalization, Other)
  Sender: FDA-Public Use
  Company Number: US-ELI_LILLY_AND_COMPANY-US202302012502

PATIENT
  Sex: Female

DRUGS (1)
  1. TRULICITY [Suspect]
     Active Substance: DULAGLUTIDE
     Indication: Diabetes mellitus
     Dosage: 3 MG, UNKNOWN
     Route: 065
     Dates: start: 2019

REACTIONS (12)
  - Myocardial infarction [Recovered/Resolved]
  - Cardiac disorder [Recovered/Resolved]
  - Toxicity to various agents [Recovered/Resolved]
  - Metabolic disorder [Recovered/Resolved]
  - Dyspnoea [Recovered/Resolved]
  - Thirst [Recovered/Resolved]
  - Tooth infection [Recovered/Resolved]
  - Osteomyelitis [Recovered/Resolved]
  - Oral discomfort [Recovered/Resolved]
  - Abdominal rigidity [Recovered/Resolved]
  - Gastrointestinal disorder [Recovered/Resolved]
  - Eructation [Unknown]
